FAERS Safety Report 23318798 (Version 3)
Quarter: 2024Q1

REPORT INFORMATION
  Report Type: Spontaneous
  Country: US (occurrence: US)
  Receive Date: 20231220
  Receipt Date: 20240104
  Transmission Date: 20240410
  Serious: No
  Sender: FDA-Public Use
  Company Number: US-BIOGEN-2023BI01240310

PATIENT
  Sex: Female

DRUGS (15)
  1. AVONEX PEN [Suspect]
     Active Substance: INTERFERON BETA-1A
     Indication: Multiple sclerosis
     Route: 050
     Dates: start: 20231107
  2. AVONEX PEN [Suspect]
     Active Substance: INTERFERON BETA-1A
  3. AVONEX PEN [Suspect]
     Active Substance: INTERFERON BETA-1A
  4. AVONEX PEN [Suspect]
     Active Substance: INTERFERON BETA-1A
  5. VITAMIN B12 [Concomitant]
     Active Substance: CYANOCOBALAMIN
     Route: 050
  6. POTASSIUM CHLORIDE [Concomitant]
     Active Substance: POTASSIUM CHLORIDE
     Route: 050
  7. PANTOPRAZOLE [Concomitant]
     Active Substance: PANTOPRAZOLE
     Route: 050
  8. LISINOPRIL [Concomitant]
     Active Substance: LISINOPRIL
     Route: 050
  9. DOCUSATE SODIUM [Concomitant]
     Active Substance: DOCUSATE SODIUM
     Route: 050
  10. BISACODYL [Concomitant]
     Active Substance: BISACODYL
     Route: 050
  11. AMANTADINE HYDROCHLORIDE [Concomitant]
     Active Substance: AMANTADINE HYDROCHLORIDE
     Route: 050
  12. CETIRIZINE HYDROCHLORIDE [Concomitant]
     Active Substance: CETIRIZINE HYDROCHLORIDE
     Route: 050
  13. OXYCODONE HYDROCHLORIDE [Concomitant]
     Active Substance: OXYCODONE HYDROCHLORIDE
     Route: 050
  14. ASPIRIN [Concomitant]
     Active Substance: ASPIRIN
     Route: 050
  15. FERROUS SULFATE [Concomitant]
     Active Substance: FERROUS SULFATE
     Route: 050

REACTIONS (3)
  - Product dose omission issue [Unknown]
  - Somnolence [Unknown]
  - Renal disorder [Unknown]

NARRATIVE: CASE EVENT DATE: 20230101
